FAERS Safety Report 13387270 (Version 1)
Quarter: 2017Q1

REPORT INFORMATION
  Report Type: Spontaneous
  Country: TR (occurrence: TR)
  Receive Date: 20170330
  Receipt Date: 20170330
  Transmission Date: 20170429
  Serious: Yes (Death, Life-Threatening, Disabling, Other)
  Sender: FDA-Public Use
  Company Number: TR-009507513-1703TUR011003

PATIENT
  Sex: Female
  Weight: 86 kg

DRUGS (8)
  1. MIDAZOLAM [Concomitant]
     Active Substance: MIDAZOLAM HYDROCHLORIDE
     Indication: INDUCTION OF ANAESTHESIA
     Dosage: 8 MG, UNK
     Route: 040
  2. ROCURONIUM BROMIDE. [Concomitant]
     Active Substance: ROCURONIUM BROMIDE
     Indication: INDUCTION OF ANAESTHESIA
     Dosage: 70 MG, UNK
     Route: 042
  3. ESMERON [Suspect]
     Active Substance: ROCURONIUM BROMIDE
     Indication: INDUCTION OF ANAESTHESIA
     Dosage: 200 MG (5 HOURS 30 MINUTES)
  4. PROPOFOL. [Concomitant]
     Active Substance: PROPOFOL
     Indication: SEDATION
     Dosage: 40 MG, STRENGTH: 20 MG/KG/HR
     Route: 040
  5. REMIFENTANIL HYDROCHLORIDE [Concomitant]
     Active Substance: REMIFENTANIL HYDROCHLORIDE
     Indication: INDUCTION OF ANAESTHESIA
     Dosage: 0.1 MICROGRAM/KG/MIN
     Route: 042
  6. SUGAMMADEX [Concomitant]
     Active Substance: SUGAMMADEX
     Dosage: 200 MG, UNK
     Route: 040
  7. PROPOFOL. [Concomitant]
     Active Substance: PROPOFOL
     Indication: INDUCTION OF ANAESTHESIA
  8. FENTANYL. [Concomitant]
     Active Substance: FENTANYL
     Indication: INDUCTION OF ANAESTHESIA
     Dosage: 300 MICROGRAM, UNK
     Route: 040

REACTIONS (2)
  - Pneumonia [Fatal]
  - Neuromuscular block prolonged [Recovered/Resolved]
